FAERS Safety Report 6768175-7 (Version None)
Quarter: 2010Q2

REPORT INFORMATION
  Report Type: 
  Country: None (occurrence: None)
  Receive Date: 20100614
  Receipt Date: 20100305
  Transmission Date: 20101027
  Serious: Yes (Death)
  Sender: FDA-Public Use
  Company Number: AU-GENENTECH-294887

PATIENT
  Sex: Male

DRUGS (5)
  1. RITUXIMAB [Suspect]
     Indication: DIFFUSE LARGE B-CELL LYMPHOMA
     Dosage: GIVEN ON DAY 1 AND DAY 2 OF CYCLE 1 AND DAY 1 OF CYCLE 2 AND 3.
     Route: 065
     Dates: start: 20040618
  2. DEXAMETASONE [Suspect]
     Indication: DIFFUSE LARGE B-CELL LYMPHOMA
     Dosage: CYCLE: 1,2,3, ON DAY 1,2,3,4 WITH 40 MG.
     Route: 065
     Dates: start: 20040618
  3. CYTARABINE [Suspect]
     Indication: DIFFUSE LARGE B-CELL LYMPHOMA
     Dosage: CYCLE 1,2,3: ON DAY 3 WITH DOSE OF 9760 MG.
     Route: 065
     Dates: start: 20040618
  4. CISPLATIN [Suspect]
     Indication: DIFFUSE LARGE B-CELL LYMPHOMA
     Dosage: CYCLE: 1,2, DOSE REPORTED 244 MG(ON 24 H) ON DAY 1.NOT DONE AT CYCLE 3 BECAUSE OF RENAL TOXICITY
     Route: 065
     Dates: start: 20040618
  5. NEUPOGEN [Suspect]
     Indication: DIFFUSE LARGE B-CELL LYMPHOMA
     Dosage: REPORTED:D6-D13 FOR 1,1,5 DAYS FOR CYCLE 1,2,3 RESPECTIVELYDOSE:480UG/DAY FOR CYCLE 3
     Route: 065
     Dates: start: 20040618

REACTIONS (1)
  - MYELODYSPLASTIC SYNDROME [None]
